FAERS Safety Report 5514054-2 (Version None)
Quarter: 2007Q4

REPORT INFORMATION
  Report Type: 
  Country: None (occurrence: None)
  Receive Date: 20071106
  Receipt Date: 20061114
  Transmission Date: 20080405
  Serious: Yes (Other)
  Sender: FDA-Public Use
  Company Number: US-JNJFOC-20061106488

PATIENT
  Sex: Female

DRUGS (1)
  1. IBUPROFEN [Suspect]
     Indication: DRUG USE FOR UNKNOWN INDICATION
     Dates: start: 20040101

REACTIONS (1)
  - HALLUCINATION [None]
